FAERS Safety Report 13997579 (Version 1)
Quarter: 2017Q3

REPORT INFORMATION
  Report Type: Spontaneous
  Country: US (occurrence: US)
  Receive Date: 20170921
  Receipt Date: 20170921
  Transmission Date: 20171128
  Serious: No
  Sender: FDA-Public Use
  Company Number: US-ALLERGAN-1732875US

PATIENT
  Sex: Female

DRUGS (2)
  1. CARAFATE [Suspect]
     Active Substance: SUCRALFATE
     Indication: DYSPEPSIA
     Dosage: 10 ML, QHS
     Route: 048
     Dates: start: 201707, end: 201707
  2. CARAFATE [Suspect]
     Active Substance: SUCRALFATE
     Dosage: 10 ML, QHS
     Route: 048
     Dates: start: 201707, end: 201707

REACTIONS (8)
  - Wrong technique in product usage process [Unknown]
  - Drug ineffective [Unknown]
  - Inappropriate schedule of drug administration [Unknown]
  - Product physical consistency issue [Unknown]
  - Off label use [Unknown]
  - Product storage error [Unknown]
  - Incorrect drug administration duration [Unknown]
  - Product taste abnormal [Unknown]
